FAERS Safety Report 5520285-8 (Version None)
Quarter: 2007Q4

REPORT INFORMATION
  Report Type: 
  Country: None (occurrence: None)
  Receive Date: 20071118
  Receipt Date: 20071109
  Transmission Date: 20080405
  Serious: Yes (Other)
  Sender: FDA-Public Use
  Company Number: US-ELI_LILLY_AND_COMPANY-US200711002339

PATIENT
  Age: 9 Year
  Sex: Male
  Weight: 27.21 kg

DRUGS (2)
  1. STRATTERA [Suspect]
     Dosage: 18 MG, UNK
     Dates: start: 20071105, end: 20071101
  2. STRATTERA [Suspect]
     Dosage: 25 MG, UNK
     Dates: start: 20071101

REACTIONS (1)
  - BLOOD GLUCOSE INCREASED [None]
